FAERS Safety Report 16785150 (Version 1)
Quarter: 2019Q3

REPORT INFORMATION
  Report Type: Spontaneous
  Country: US (occurrence: US)
  Receive Date: 20190907
  Receipt Date: 20190907
  Transmission Date: 20191005
  Serious: No
  Sender: FDA-Public Use
  Company Number: None

PATIENT
  Age: 56 Year
  Sex: Male
  Weight: 96.75 kg

DRUGS (4)
  1. THC VAPE PEN [Suspect]
     Active Substance: DEVICE\HERBALS
     Indication: PAIN
     Route: 055
     Dates: end: 20190907
  2. TOPAMAX [Concomitant]
     Active Substance: TOPIRAMATE
  3. CYMBALTA [Concomitant]
     Active Substance: DULOXETINE HYDROCHLORIDE
  4. LYRICA [Concomitant]
     Active Substance: PREGABALIN

REACTIONS (6)
  - Device operational issue [None]
  - Product quality issue [None]
  - Dyspnoea [None]
  - Device use issue [None]
  - Product taste abnormal [None]
  - Respiratory symptom [None]

NARRATIVE: CASE EVENT DATE: 20190907
